FAERS Safety Report 20891611 (Version 1)
Quarter: 2022Q2

REPORT INFORMATION
  Report Type: Spontaneous
  Country: US (occurrence: US)
  Receive Date: 20220530
  Receipt Date: 20220530
  Transmission Date: 20220721
  Serious: Yes (Other)
  Sender: FDA-Public Use
  Company Number: US-BRISTOL-MYERS SQUIBB COMPANY-2022-021217

PATIENT
  Age: 65 Year
  Sex: Female

DRUGS (1)
  1. VIDAZA [Suspect]
     Active Substance: AZACITIDINE
     Indication: Product used for unknown indication
     Dosage: DOSE : UNAVAILABLE; FREQ : 120 MG SUBCUTANEOUSLY ONCE DAILY FOR SEVEN DAYS EVERY 28 DAYS
     Route: 058

REACTIONS (1)
  - Cytopenia [Unknown]
